FAERS Safety Report 16472470 (Version 2)
Quarter: 2019Q2

REPORT INFORMATION
  Report Type: Spontaneous
  Country: US (occurrence: US)
  Receive Date: 20190625
  Receipt Date: 20190625
  Transmission Date: 20190711
  Serious: No
  Sender: FDA-Public Use
  Company Number: US-009507513-1906USA009203

PATIENT
  Age: 28 Year
  Sex: Female
  Weight: 83.45 kg

DRUGS (1)
  1. NEXPLANON [Suspect]
     Active Substance: ETONOGESTREL
     Indication: CONTRACEPTION
     Dosage: 1 DOSAGE FORM (1 IMPLANT EVERY 3 YEARS)
     Route: 059
     Dates: start: 2012

REACTIONS (4)
  - Circumstance or information capable of leading to device use error [Unknown]
  - Incorrect product administration duration [Unknown]
  - Expired product administered [Unknown]
  - Complication of device removal [Not Recovered/Not Resolved]

NARRATIVE: CASE EVENT DATE: 2012
